FAERS Safety Report 17891347 (Version 1)
Quarter: 2020Q2

REPORT INFORMATION
  Report Type: Spontaneous
  Country: US (occurrence: US)
  Receive Date: 20200612
  Receipt Date: 20200612
  Transmission Date: 20200714
  Serious: No
  Sender: FDA-Public Use
  Company Number: US-PFIZER INC-2020229678

PATIENT
  Age: 64 Year
  Sex: Male
  Weight: 99.77 kg

DRUGS (2)
  1. IBRANCE [Suspect]
     Active Substance: PALBOCICLIB
     Dosage: 125 MG, CYCLIC (DAILY FOR 3 WEEKS ON, 1 WEEK OFF)
     Route: 048
     Dates: start: 20200422
  2. CENTRUM SILVER ULTRA [Concomitant]
     Dosage: UNK

REACTIONS (1)
  - Fatigue [Unknown]
